FAERS Safety Report 7035462-7 (Version None)
Quarter: 2010Q4

REPORT INFORMATION
  Report Type: 
  Country: None (occurrence: None)
  Receive Date: 20101008
  Receipt Date: 20101001
  Transmission Date: 20110411
  Serious: Yes (Hospitalization, Other)
  Sender: FDA-Public Use
  Company Number: AU-PFIZER INC-2010109853

PATIENT
  Age: 40 Year
  Sex: Male
  Weight: 70 kg

DRUGS (4)
  1. CHAMPIX [Suspect]
     Indication: SMOKING CESSATION THERAPY
     Dosage: 1 MG, 1X/DAY
     Route: 048
  2. SEROQUEL [Suspect]
     Dosage: 25 MG, UNK
  3. LEXAPRO [Concomitant]
     Indication: DEPRESSION
     Dosage: 20 MG, 1X/DAY, IN THE MORNING
     Route: 048
  4. XANAX [Concomitant]
     Indication: ANXIETY
     Dosage: 1 MG, AS NEEDED
     Route: 048

REACTIONS (4)
  - ABNORMAL BEHAVIOUR [None]
  - AGITATION [None]
  - DISSOCIATIVE DISORDER [None]
  - SELF INJURIOUS BEHAVIOUR [None]
